FAERS Safety Report 7622785-3 (Version None)
Quarter: 2011Q3

REPORT INFORMATION
  Report Type: 
  Country: None (occurrence: None)
  Receive Date: 20110719
  Receipt Date: 20110719
  Transmission Date: 20111222
  Serious: Yes (Life-Threatening, Hospitalization, Other)
  Sender: FDA-Public Use
  Company Number: None

PATIENT
  Sex: Male
  Weight: 90 kg

DRUGS (1)
  1. INTELENCE [Suspect]
     Indication: ANTIVIRAL TREATMENT
     Dosage: 2 X 100 MG X 2 TIME DAILY
     Dates: start: 20091001, end: 20110501

REACTIONS (5)
  - DRUG INTERACTION [None]
  - CD4 LYMPHOCYTES DECREASED [None]
  - DRUG INEFFECTIVE [None]
  - CD8 LYMPHOCYTES DECREASED [None]
  - HEPATIC ENZYME INCREASED [None]
